FAERS Safety Report 8343320-0 (Version None)
Quarter: 2012Q2

REPORT INFORMATION
  Report Type: 
  Country: None (occurrence: None)
  Receive Date: 20120508
  Receipt Date: 20120503
  Transmission Date: 20120825
  Serious: Yes (Life-Threatening, Hospitalization)
  Sender: FDA-Public Use
  Company Number: PHHO2011US021717

PATIENT
  Sex: Female
  Weight: 90.3 kg

DRUGS (13)
  1. KLONOPIN [Suspect]
     Indication: ANXIETY
     Dosage: WEEKLY
     Dates: start: 20110818
  2. BUSPAR [Concomitant]
     Indication: DEPRESSION
     Dosage: 10 MG, BID
     Route: 048
     Dates: start: 20120327, end: 20120413
  3. BUSPAR [Concomitant]
     Dosage: 15 MG, BID
     Route: 048
     Dates: start: 20120413
  4. EFFEXOR [Concomitant]
     Dosage: UNK
     Dates: start: 20110902
  5. PLACEBO [Suspect]
     Indication: CARDIOVASCULAR EVENT PROPHYLAXIS
     Dosage: DOUBLE BLINDED
     Dates: start: 20110623
  6. ILARIS [Suspect]
     Indication: CARDIOVASCULAR EVENT PROPHYLAXIS
     Dosage: DOUBLE BLINDED
     Dates: start: 20110623
  7. BLINDED NO TREATMENT RECEIVED [Suspect]
     Indication: CARDIOVASCULAR EVENT PROPHYLAXIS
     Dosage: DOUBLE BLINDED
     Dates: start: 20110623
  8. EFFEXOR [Concomitant]
     Indication: DEPRESSION
     Dosage: 37.5 MG, QW
     Dates: start: 20110804
  9. TRAZODONE HCL [Concomitant]
     Indication: INSOMNIA
     Dosage: 160 MG, QHS
     Route: 048
     Dates: start: 20120327
  10. ASPIRIN [Concomitant]
     Indication: CORONARY ARTERY DISEASE
     Dosage: 81 MG, QD
     Route: 048
     Dates: start: 20111128
  11. METOPROLOL SUCCINATE EXTENDED RELEASE [Suspect]
     Dosage: 25 MG, BID
     Route: 048
     Dates: start: 20110617, end: 20120430
  12. METOPROLOL SUCCINATE EXTENDED RELEASE [Suspect]
     Dosage: 50 MG, BID
     Route: 048
     Dates: start: 20120501
  13. EFFEXOR [Concomitant]
     Dosage: UNK
     Dates: start: 20111027

REACTIONS (6)
  - CONCOMITANT DISEASE PROGRESSION [None]
  - PALPITATIONS [None]
  - SUICIDE ATTEMPT [None]
  - SUICIDAL IDEATION [None]
  - ANGINA UNSTABLE [None]
  - OVERDOSE [None]
